FAERS Safety Report 20764197 (Version 3)
Quarter: 2022Q2

REPORT INFORMATION
  Report Type: Spontaneous
  Country: US (occurrence: US)
  Receive Date: 20220428
  Receipt Date: 20220601
  Transmission Date: 20220720
  Serious: Yes (Hospitalization)
  Sender: FDA-Public Use
  Company Number: US-KARYOPHARM-2022KPT000456

PATIENT

DRUGS (14)
  1. XPOVIO [Suspect]
     Active Substance: SELINEXOR
     Indication: Plasma cell myeloma
     Dosage: 60 MG, WEEKLY, ON DAY 1 OF EACH WEEK
     Route: 048
     Dates: start: 202008
  2. XPOVIO [Suspect]
     Active Substance: SELINEXOR
     Dosage: 80 MG, WEEKLY ON DAYS 1, 8, 15, AND 22
     Route: 048
     Dates: start: 202203
  3. XPOVIO [Suspect]
     Active Substance: SELINEXOR
     Dosage: 60 MG, WEEKLY
     Route: 048
     Dates: start: 202204
  4. XPOVIO [Suspect]
     Active Substance: SELINEXOR
     Dosage: 60 MG, WEEKLY, DAYS 1, 8, AND 15 OF A 28-DAY CYCLE
     Route: 048
     Dates: start: 202204, end: 20220509
  5. ZYPREXA [Concomitant]
     Active Substance: OLANZAPINE
  6. PROCHLORPERAZINE [Concomitant]
     Active Substance: PROCHLORPERAZINE
  7. ACYCLOVIR [Concomitant]
     Active Substance: ACYCLOVIR
  8. ALLOPURINOL [Concomitant]
     Active Substance: ALLOPURINOL
  9. ATENOLOL [Concomitant]
     Active Substance: ATENOLOL
  10. ATORVASTATIN [Concomitant]
     Active Substance: ATORVASTATIN
  11. DIGOXIN [Concomitant]
     Active Substance: DIGOXIN
  12. ELIQUIS [Concomitant]
     Active Substance: APIXABAN
  13. ONDANSETRON [Concomitant]
     Active Substance: ONDANSETRON
  14. MIRTAZAPINE [Concomitant]
     Active Substance: MIRTAZAPINE

REACTIONS (6)
  - Gastrointestinal pain [Unknown]
  - Pneumonia [Recovering/Resolving]
  - Thirst decreased [Unknown]
  - Platelet count decreased [Unknown]
  - Fatigue [Unknown]
  - Decreased appetite [Unknown]

NARRATIVE: CASE EVENT DATE: 20220101
